FAERS Safety Report 16487695 (Version 1)
Quarter: 2019Q3

REPORT INFORMATION
  Report Type: Spontaneous
  Country: US (occurrence: US)
  Receive Date: 20190626
  Receipt Date: 20190626
  Transmission Date: 20191004
  Serious: Yes (Hospitalization)
  Sender: FDA-Public Use
  Company Number: None

PATIENT
  Sex: Female

DRUGS (16)
  1. MORPHINE 15MG [Concomitant]
     Active Substance: MORPHINE
     Dates: start: 20190326
  2. MONTELUKAST [Concomitant]
     Active Substance: MONTELUKAST SODIUM
     Dates: start: 20180120
  3. XELJANZ [Suspect]
     Active Substance: TOFACITINIB CITRATE
     Indication: RHEUMATOID ARTHRITIS
     Route: 048
     Dates: start: 20190325
  4. CLONAZEPAM 0.5MG [Concomitant]
     Active Substance: CLONAZEPAM
     Dates: start: 20171108
  5. OMEPRAZOLE 40MG [Concomitant]
     Active Substance: OMEPRAZOLE
     Dates: start: 20180122
  6. HYDROCHLOROTIAZIDE 12.5MG [Concomitant]
     Dates: start: 20181228
  7. FLONASE [Concomitant]
     Active Substance: FLUTICASONE PROPIONATE
     Dates: start: 20180709
  8. SIMVASTATIN 40MG [Concomitant]
     Active Substance: SIMVASTATIN
     Dates: start: 20190325
  9. LEVOXYL 25MCG [Concomitant]
     Dates: start: 20180418
  10. SUCRALFATE 1GM [Concomitant]
     Dates: start: 20171110
  11. ONDASETRON ODT 4MG [Concomitant]
     Dates: start: 20190302
  12. BENZONATATE 100MG [Concomitant]
     Active Substance: BENZONATATE
     Dates: start: 20171106
  13. SUMATRIPTAN 50MG [Concomitant]
     Active Substance: SUMATRIPTAN
     Dates: start: 20190425
  14. AMOX/ K CLAV 875-125 [Concomitant]
     Dates: start: 20190425
  15. LOSARTAN 100MG [Concomitant]
     Active Substance: LOSARTAN
     Dates: start: 20171110
  16. DICYCLOMINE 20MG [Concomitant]
     Dates: start: 20180709

REACTIONS (1)
  - Hospitalisation [None]
